FAERS Safety Report 4449557-5 (Version None)
Quarter: 2004Q3

REPORT INFORMATION
  Report Type: 
  Country: None (occurrence: None)
  Receive Date: 20040913
  Receipt Date: 20040827
  Transmission Date: 20050211
  Serious: Yes (Other)
  Sender: FDA-Public Use
  Company Number: NL-2004-030951

PATIENT
  Age: 43 Year
  Sex: Female

DRUGS (3)
  1. BETAFERON(INTERFERON BETA-1B)INJECTION, 250UG [Suspect]
     Indication: MULTIPLE SCLEROSIS
     Dosage: 8 MIU, EVERY 2D, SUBCUTANEOUS
     Route: 058
  2. BRUFEN [Concomitant]
  3. PAROXETINE HCL [Concomitant]

REACTIONS (1)
  - VITILIGO [None]
